FAERS Safety Report 9387313 (Version 6)
Quarter: 2013Q4

REPORT INFORMATION
  Report Type: Spontaneous
  Country: US (occurrence: US)
  Receive Date: 20130708
  Receipt Date: 20131105
  Transmission Date: 20140711
  Serious: Yes (Congenital Anomaly, Other)
  Sender: FDA-Public Use
  Company Number: US-JNJFOC-20130700045

PATIENT
  Sex: Male

DRUGS (5)
  1. TOPAMAX [Suspect]
     Indication: MIGRAINE
     Route: 064
  2. MACROBID (NITROFURANTOIN) [Suspect]
     Indication: URINARY TRACT INFECTION
     Route: 064
  3. MACRODANTIN [Suspect]
     Indication: URINARY TRACT INFECTION
     Route: 064
  4. AMOXICILLIN [Suspect]
     Indication: URINARY TRACT INFECTION
     Route: 064
  5. PRILOSEC [Suspect]
     Indication: DYSPEPSIA
     Route: 064

REACTIONS (3)
  - Hydrocele [Unknown]
  - Velopharyngeal incompetence [Unknown]
  - Foetal exposure during pregnancy [Recovered/Resolved]
